FAERS Safety Report 8207277-5 (Version None)
Quarter: 2012Q1

REPORT INFORMATION
  Report Type: 
  Country: None (occurrence: None)
  Receive Date: 20120314
  Receipt Date: 20120306
  Transmission Date: 20120608
  Serious: Yes (Other)
  Sender: FDA-Public Use
  Company Number: US-CELGENEUS-163-20785-12012543

PATIENT
  Sex: Female

DRUGS (2)
  1. THALOMID [Suspect]
     Indication: MULTIPLE MYELOMA
     Dosage: 50 MILLIGRAM
     Route: 048
     Dates: start: 20080716, end: 20100609
  2. ZOMETA [Concomitant]
     Indication: MULTIPLE MYELOMA
     Dosage: 3/4 MG
     Route: 065
     Dates: start: 20100412, end: 20101029

REACTIONS (1)
  - OSTEONECROSIS [None]
